FAERS Safety Report 24668865 (Version 1)
Quarter: 2024Q4

REPORT INFORMATION
  Report Type: Spontaneous
  Country: CH (occurrence: CH)
  Receive Date: 20241127
  Receipt Date: 20241127
  Transmission Date: 20250115
  Serious: Yes (Other)
  Sender: JOHNSON AND JOHNSON
  Company Number: None

PATIENT
  Age: 12 Year
  Sex: Female
  Weight: 43 kg

DRUGS (9)
  1. CONCERTA [Suspect]
     Active Substance: METHYLPHENIDATE HYDROCHLORIDE
     Indication: Narcolepsy
     Dosage: LONGTERM.
     Route: 048
     Dates: end: 20240825
  2. CONCERTA [Suspect]
     Active Substance: METHYLPHENIDATE HYDROCHLORIDE
     Route: 048
     Dates: start: 20240902
  3. FLUOXETINE [Suspect]
     Active Substance: FLUOXETINE HYDROCHLORIDE
     Indication: Narcolepsy
     Route: 048
     Dates: start: 20230323, end: 20230924
  4. FLUOXETINE [Suspect]
     Active Substance: FLUOXETINE HYDROCHLORIDE
     Route: 048
     Dates: start: 20230925, end: 20240825
  5. XYREM [Suspect]
     Active Substance: SODIUM OXYBATE
     Indication: Narcolepsy
     Dosage: 2 ADMINISTRATIONS PAR JOUR (LE SOIR).
     Route: 048
     Dates: start: 20240825, end: 20240901
  6. XYREM [Suspect]
     Active Substance: SODIUM OXYBATE
     Dosage: 2 ADMINISTRATIONS PAR JOUR (LE SOIR).
     Route: 048
     Dates: start: 20240902, end: 20240919
  7. XYREM [Suspect]
     Active Substance: SODIUM OXYBATE
     Dosage: 2 ADMINISTRATIONS PAR JOUR (LE SOIR).
     Route: 048
     Dates: start: 20240920, end: 20240922
  8. XYREM [Suspect]
     Active Substance: SODIUM OXYBATE
     Dosage: 2 ADMINISTRATIONS PAR JOUR (LE SOIR).
     Route: 048
     Dates: start: 20240923, end: 20240925
  9. XYREM [Suspect]
     Active Substance: SODIUM OXYBATE
     Dosage: 2 ADMINISTRATIONS PAR JOUR (LE SOIR).
     Route: 048
     Dates: start: 20240926

REACTIONS (6)
  - Product administration error [Recovered/Resolved]
  - Somnolence [Recovering/Resolving]
  - Withdrawal syndrome [Recovering/Resolving]
  - Affect lability [Recovering/Resolving]
  - Disturbance in attention [Recovering/Resolving]
  - Suicidal ideation [Recovering/Resolving]

NARRATIVE: CASE EVENT DATE: 20240825
